FAERS Safety Report 4949805-9 (Version None)
Quarter: 2006Q1

REPORT INFORMATION
  Report Type: 
  Country: None (occurrence: None)
  Receive Date: 20060321
  Receipt Date: 20050606
  Transmission Date: 20060701
  Serious: Yes (Death, Hospitalization, Other)
  Sender: FDA-Public Use
  Company Number: GB-MERCK-0506GBR00099

PATIENT
  Age: 75 Year
  Sex: Male

DRUGS (14)
  1. VIOXX [Suspect]
     Indication: PAIN
     Route: 048
     Dates: start: 20031101, end: 20031101
  2. VIOXX [Suspect]
     Route: 048
     Dates: start: 20031101, end: 20040301
  3. ATORVASTATIN CALCIUM [Concomitant]
     Route: 065
  4. OMEPRAZOLE [Concomitant]
     Route: 065
  5. TAMSULOSIN HYDROCHLORIDE [Concomitant]
     Route: 065
  6. FUROSEMIDE [Concomitant]
     Route: 065
  7. FERROUS SULFATE [Concomitant]
     Route: 065
     Dates: end: 20040707
  8. ASPIRIN [Concomitant]
     Route: 065
     Dates: end: 20040707
  9. WARFARIN [Concomitant]
     Route: 065
     Dates: end: 20040707
  10. DIFLUNISAL [Concomitant]
     Route: 065
     Dates: end: 20040707
  11. RAMIPRIL [Concomitant]
     Route: 065
  12. TRAMADOL HYDROCHLORIDE [Concomitant]
     Route: 065
  13. ACETAMINOPHEN [Concomitant]
     Route: 065
  14. CELECOXIB [Concomitant]
     Indication: PAIN
     Route: 065
     Dates: start: 20040527

REACTIONS (15)
  - ANAEMIA [None]
  - ANOREXIA [None]
  - BONE MARROW OEDEMA [None]
  - CARDIAC FAILURE [None]
  - CONSTIPATION [None]
  - GASTRIC HAEMORRHAGE [None]
  - HAEMATEMESIS [None]
  - HALLUCINATION [None]
  - LOWER RESPIRATORY TRACT INFECTION [None]
  - OESOPHAGITIS [None]
  - PNEUMOTHORAX [None]
  - PULMONARY OEDEMA [None]
  - RESPIRATORY FAILURE [None]
  - SINUS TACHYCARDIA [None]
  - TACHYCARDIA [None]
